FAERS Safety Report 24274146 (Version 1)
Quarter: 2024Q3

REPORT INFORMATION
  Report Type: Spontaneous
  Country: BR (occurrence: BR)
  Receive Date: 20240902
  Receipt Date: 20240902
  Transmission Date: 20241017
  Serious: Yes (Other)
  Sender: ELI LILLY AND CO
  Company Number: BR-ELI_LILLY_AND_COMPANY-BR202404004804

PATIENT
  Sex: Female

DRUGS (4)
  1. PROZAC [Suspect]
     Active Substance: FLUOXETINE HYDROCHLORIDE
     Indication: Major depression
     Dosage: 20 MG, DAILY
     Route: 065
     Dates: start: 20240326
  2. PROZAC [Suspect]
     Active Substance: FLUOXETINE HYDROCHLORIDE
     Dosage: 40 MG, DAILY
     Route: 065
     Dates: start: 20240416
  3. PROZAC [Suspect]
     Active Substance: FLUOXETINE HYDROCHLORIDE
     Dosage: 40 MG, DAILY (2 CAPSULES OF 20 MG 1X DAILY)
     Route: 065
  4. PROZAC [Suspect]
     Active Substance: FLUOXETINE HYDROCHLORIDE
     Dosage: 80 MG, UNKNOWN
     Route: 065

REACTIONS (19)
  - Respiratory tract congestion [Unknown]
  - Nasopharyngitis [Unknown]
  - Energy increased [Unknown]
  - Decreased immune responsiveness [Unknown]
  - Nasopharyngitis [Unknown]
  - Cough [Not Recovered/Not Resolved]
  - Product dose omission in error [Unknown]
  - Dysphonia [Recovered/Resolved]
  - Sensitivity to weather change [Unknown]
  - Influenza [Unknown]
  - Pyrexia [Unknown]
  - Bruxism [Unknown]
  - Insomnia [Unknown]
  - Dyskinesia [Unknown]
  - Anxiety [Unknown]
  - Disturbance in attention [Unknown]
  - Decreased appetite [Unknown]
  - Balance disorder [Unknown]
  - Headache [Unknown]

NARRATIVE: CASE EVENT DATE: 20240406
